FAERS Safety Report 21415580 (Version 2)
Quarter: 2023Q2

REPORT INFORMATION
  Report Type: Spontaneous
  Country: HU (occurrence: HU)
  Receive Date: 20221006
  Receipt Date: 20230614
  Transmission Date: 20230721
  Serious: Yes (Other)
  Sender: FDA-Public Use
  Company Number: HU-JNJFOC-20220962895

PATIENT
  Age: 60 Year
  Sex: Male

DRUGS (3)
  1. SPRAVATO [Suspect]
     Active Substance: ESKETAMINE
     Indication: Depression
     Dosage: AFTER 4 WEEKS TREATMENT, THEN WEEKLY AND IN THE 7TH WEEK, DUE TO COLD, THE PATIENT WAS GIVEN ESKETAM
     Dates: start: 20220320
  2. DULOXETINE [Concomitant]
     Active Substance: DULOXETINE
     Route: 065
  3. DULOXETINE [Concomitant]
     Active Substance: DULOXETINE
     Route: 065

REACTIONS (7)
  - Suicidal ideation [Recovered/Resolved]
  - Major depression [Unknown]
  - Dissociative disorder [Unknown]
  - Asthenia [Unknown]
  - Sedation [Unknown]
  - Dizziness [Unknown]
  - Nasopharyngitis [Unknown]

NARRATIVE: CASE EVENT DATE: 20220101
